FAERS Safety Report 15536017 (Version 1)
Quarter: 2018Q4

REPORT INFORMATION
  Report Type: Report from Study
  Country: US (occurrence: US)
  Receive Date: 20181022
  Receipt Date: 20181022
  Transmission Date: 20190205
  Serious: Yes (Death, Hospitalization, Other)
  Sender: FDA-Public Use
  Company Number: US-TAKEDA-2018TUS030257

PATIENT
  Age: 69 Year
  Sex: Male
  Weight: 113.38 kg

DRUGS (1)
  1. VORTIOXETINE. [Suspect]
     Active Substance: VORTIOXETINE
     Indication: DEPRESSION
     Dosage: UNK
     Route: 048
     Dates: end: 20180704

REACTIONS (7)
  - Dyspnoea [Unknown]
  - Pulmonary fibrosis [Fatal]
  - Oxygen saturation decreased [Unknown]
  - Pneumonia [Unknown]
  - Respiratory failure [Fatal]
  - Fluid retention [Unknown]
  - Weight decreased [Unknown]

NARRATIVE: CASE EVENT DATE: 201806
